FAERS Safety Report 23955422 (Version 1)
Quarter: 2024Q2

REPORT INFORMATION
  Report Type: Spontaneous
  Country: JP (occurrence: JP)
  Receive Date: 20240610
  Receipt Date: 20240610
  Transmission Date: 20240716
  Serious: Yes (Other)
  Sender: FDA-Public Use
  Company Number: JP-CHUGAI-2024018710AA

PATIENT
  Age: 75 Year
  Sex: Male

DRUGS (2)
  1. ACTEMRA [Suspect]
     Active Substance: TOCILIZUMAB
     Indication: Rheumatoid arthritis
     Route: 065
     Dates: start: 2014
  2. ACTEMRA [Suspect]
     Active Substance: TOCILIZUMAB
     Dosage: UNK, ONCE/2WEEKS
     Route: 065
     Dates: start: 2023

REACTIONS (3)
  - Neoplasm malignant [Unknown]
  - Inappropriate schedule of product administration [Unknown]
  - Treatment noncompliance [Unknown]

NARRATIVE: CASE EVENT DATE: 20240101
